FAERS Safety Report 22162592 (Version 2)
Quarter: 2023Q2

REPORT INFORMATION
  Report Type: Spontaneous
  Country: US (occurrence: US)
  Receive Date: 20230331
  Receipt Date: 20230407
  Transmission Date: 20230721
  Serious: No
  Sender: FDA-Public Use
  Company Number: US-BAYER-2023A038442

PATIENT
  Age: 39 Year
  Sex: Female

DRUGS (5)
  1. ESTRADIOL [Suspect]
     Active Substance: ESTRADIOL
     Dosage: UNK
     Route: 062
  2. METOPROLOL [Concomitant]
     Active Substance: METOPROLOL
  3. BUPROPION [Concomitant]
     Active Substance: BUPROPION
  4. HYDROXYCHLOROQUINE [Concomitant]
     Active Substance: HYDROXYCHLOROQUINE
  5. MELOXICAM [Concomitant]
     Active Substance: MELOXICAM

REACTIONS (2)
  - Product adhesion issue [None]
  - Product dose omission issue [None]

NARRATIVE: CASE EVENT DATE: 20230212
